FAERS Safety Report 16340970 (Version 1)
Quarter: 2019Q2

REPORT INFORMATION
  Report Type: Spontaneous
  Country: CA (occurrence: CA)
  Receive Date: 20190522
  Receipt Date: 20190522
  Transmission Date: 20190711
  Serious: Yes (Death, Hospitalization, Other)
  Sender: FDA-Public Use
  Company Number: CA-TEVA-2019-CA-1051011

PATIENT
  Age: 55 Year
  Sex: Male
  Weight: 72 kg

DRUGS (16)
  1. PANTOPRAZOLE [Concomitant]
     Active Substance: PANTOPRAZOLE
  2. SPIRONOLACTONE. [Concomitant]
     Active Substance: SPIRONOLACTONE
  3. CIPROFLOXACIN. [Concomitant]
     Active Substance: CIPROFLOXACIN
  4. NADOLOL. [Concomitant]
     Active Substance: NADOLOL
  5. ATENOLOL. [Concomitant]
     Active Substance: ATENOLOL
  6. CLOZAPINE. [Concomitant]
     Active Substance: CLOZAPINE
  7. UPTRAVI [Concomitant]
     Active Substance: SELEXIPAG
  8. LANTUS [Concomitant]
     Active Substance: INSULIN GLARGINE
     Dosage: FORM OF ADMIN : SOLUTION SUBCUTANEOUS
  9. UPTRAVI [Concomitant]
     Active Substance: SELEXIPAG
  10. HALOPERIDOL. [Concomitant]
     Active Substance: HALOPERIDOL
  11. SENOKOT [Concomitant]
     Active Substance: SENNOSIDES
  12. FOLIC ACID. [Concomitant]
     Active Substance: FOLIC ACID
  13. ZAXINE [Concomitant]
     Active Substance: RIFAXIMIN
  14. SILDENAFIL CITRATE. [Suspect]
     Active Substance: SILDENAFIL CITRATE
     Indication: PULMONARY ARTERIAL HYPERTENSION
     Dosage: 60 MILLIGRAM DAILY;
     Route: 048
  15. FUROSEMIDE. [Concomitant]
     Active Substance: FUROSEMIDE
  16. MACITENTAN [Concomitant]
     Active Substance: MACITENTAN

REACTIONS (9)
  - Diabetes mellitus inadequate control [Fatal]
  - Diarrhoea [Fatal]
  - Death [Fatal]
  - Myalgia [Fatal]
  - Nausea [Fatal]
  - Headache [Fatal]
  - Renal impairment [Fatal]
  - Vomiting [Fatal]
  - Retching [Fatal]
